FAERS Safety Report 7289165-4 (Version None)
Quarter: 2011Q1

REPORT INFORMATION
  Report Type: 
  Country: None (occurrence: None)
  Receive Date: 20110211
  Receipt Date: 20110128
  Transmission Date: 20110831
  Serious: Yes (Hospitalization)
  Sender: FDA-Public Use
  Company Number: US-CELGENEUS-163-21880-11013052

PATIENT
  Sex: Male
  Weight: 71.4 kg

DRUGS (20)
  1. REVLIMID [Suspect]
     Indication: AMYLOIDOSIS
     Route: 048
     Dates: start: 20091002, end: 20100107
  2. LASIX [Concomitant]
     Route: 065
  3. DEXAMETHASONE [Suspect]
     Indication: AMYLOIDOSIS
     Route: 065
     Dates: start: 20091002, end: 20100107
  4. MELPHALAN [Suspect]
     Indication: AMYLOIDOSIS
     Route: 065
     Dates: start: 20091002, end: 20100107
  5. AMIODARONE [Concomitant]
     Route: 065
  6. POTASSIUM [Concomitant]
     Route: 065
  7. HYDROCHLOROTHIAZIDE [Concomitant]
     Route: 065
  8. DIURETICS [Concomitant]
     Indication: CARDIOMYOPATHY
     Route: 065
  9. INSPRA [Concomitant]
     Indication: ASCITES
  10. FOLIC ACID [Concomitant]
     Route: 065
  11. DIURETICS [Concomitant]
     Indication: LEFT VENTRICULAR DYSFUNCTION
  12. INSPRA [Concomitant]
     Indication: LEFT VENTRICULAR DYSFUNCTION
  13. COUMADIN [Concomitant]
     Dosage: 2.5-5MG
     Route: 065
  14. LACTULOSE [Concomitant]
     Indication: CONSTIPATION
     Route: 065
  15. MIRALAX [Concomitant]
     Indication: CONSTIPATION
     Route: 065
  16. INSPRA [Concomitant]
     Indication: CARDIOMYOPATHY
     Dosage: 75MG-50MG-25MG
     Route: 065
  17. ASPIRIN [Concomitant]
     Route: 065
  18. ULTRAM [Concomitant]
     Route: 065
     Dates: start: 20091229
  19. SENNA [Concomitant]
     Indication: CONSTIPATION
     Route: 048
  20. LEVOTHYROXINE SODIUM [Concomitant]
     Route: 065

REACTIONS (4)
  - DEHYDRATION [None]
  - HYPONATRAEMIA [None]
  - ILEUS [None]
  - HYPOKALAEMIA [None]
